FAERS Safety Report 8689676 (Version 2)
Quarter: 2013Q4

REPORT INFORMATION
  Report Type: Spontaneous
  Country: US (occurrence: US)
  Receive Date: 20120727
  Receipt Date: 20131118
  Transmission Date: 20140711
  Serious: No
  Sender: FDA-Public Use
  Company Number: US-ASTRAZENECA-2012SE07225

PATIENT
  Age: 50 Year
  Sex: Female

DRUGS (3)
  1. SEROQUEL [Suspect]
     Route: 048
  2. SEROQUEL [Suspect]
     Route: 048
     Dates: start: 201310
  3. SEROQUEL [Suspect]
     Route: 048

REACTIONS (6)
  - Malaise [Unknown]
  - Agitation [Unknown]
  - Adverse event [Unknown]
  - Fatigue [Unknown]
  - Off label use [Unknown]
  - Drug dose omission [Unknown]
